FAERS Safety Report 19938078 (Version 1)
Quarter: 2021Q4

REPORT INFORMATION
  Report Type: Other
  Country: US (occurrence: US)
  Receive Date: 20211011
  Receipt Date: 20211011
  Transmission Date: 20220303
  Serious: No
  Sender: FDA-Public Use
  Company Number: US-ROCHE-2744998

PATIENT
  Age: 66 Year
  Sex: Female

DRUGS (2)
  1. VEMURAFENIB [Suspect]
     Active Substance: VEMURAFENIB
     Indication: Metastatic malignant melanoma
     Route: 065
     Dates: start: 201304, end: 201308
  2. IPILIMUMAB [Concomitant]
     Active Substance: IPILIMUMAB
     Indication: Metastatic malignant melanoma
     Dates: start: 20130813, end: 20131015

REACTIONS (1)
  - Skin lesion [Unknown]
